FAERS Safety Report 4520580-5 (Version None)
Quarter: 2004Q4

REPORT INFORMATION
  Report Type: 
  Country: None (occurrence: None)
  Receive Date: 20041203
  Receipt Date: 20041122
  Transmission Date: 20050328
  Serious: Yes (Hospitalization, Other)
  Sender: FDA-Public Use
  Company Number: 2004096799

PATIENT
  Age: 72 Year
  Sex: Female
  Weight: 87.0906 kg

DRUGS (2)
  1. TOLTERODINE LA (TOLTERODINE) [Suspect]
     Indication: HYPERTONIC BLADDER
     Dosage: 4 MG (4 MG, QD INTERVAL: EVERY DAY), ORAL
     Route: 048
     Dates: start: 20040701
  2. DIOVAN [Concomitant]

REACTIONS (1)
  - DIVERTICULITIS [None]
